FAERS Safety Report 9274305 (Version 2)
Quarter: 2013Q2

REPORT INFORMATION
  Report Type: Spontaneous
  Country: US (occurrence: US)
  Receive Date: 20130506
  Receipt Date: 20130508
  Transmission Date: 20140414
  Serious: Yes (Hospitalization)
  Sender: FDA-Public Use
  Company Number: US-GILEAD-2013-0074422

PATIENT
  Sex: Female

DRUGS (1)
  1. LETAIRIS [Suspect]
     Indication: PRODUCT USED FOR UNKNOWN INDICATION
     Dosage: 10 MG, UNK
     Dates: start: 20130121

REACTIONS (5)
  - Pneumonia [Unknown]
  - Influenza [Unknown]
  - Pulmonary congestion [Unknown]
  - Mechanical ventilation [Unknown]
  - Dyspnoea [Unknown]
